FAERS Safety Report 9536832 (Version 2)
Quarter: 2013Q4

REPORT INFORMATION
  Report Type: Spontaneous
  Country: BR (occurrence: BR)
  Receive Date: 20130919
  Receipt Date: 20131022
  Transmission Date: 20140711
  Serious: Yes (Other)
  Sender: FDA-Public Use
  Company Number: BR-PFIZER INC-2013265393

PATIENT
  Age: 10 Month
  Sex: Male

DRUGS (1)
  1. ZITROMAX [Suspect]
     Dosage: UNK
     Route: 048

REACTIONS (4)
  - Choking [Unknown]
  - Vomiting [Unknown]
  - Dysgeusia [Unknown]
  - Dysgeusia [Unknown]
